FAERS Safety Report 6240021-X (Version None)
Quarter: 2009Q2

REPORT INFORMATION
  Report Type: 
  Country: None (occurrence: None)
  Receive Date: 20090623
  Receipt Date: 20090617
  Transmission Date: 20091009
  Serious: Yes (Life-Threatening, Other)
  Sender: FDA-Public Use
  Company Number: PHBS2006JP15180

PATIENT
  Age: 22 Year
  Sex: Male
  Weight: 62 kg

DRUGS (9)
  1. SANDIMMUNE [Suspect]
     Indication: UNRELATED DONOR BONE MARROW TRANSPLANTATION THERAPY
     Dosage: 3 MG/KG/DAY
     Dates: start: 20060309, end: 20060410
  2. SANDIMMUNE [Suspect]
     Dosage: UNK
  3. METHOTREXATE [Concomitant]
     Indication: UNRELATED DONOR BONE MARROW TRANSPLANTATION THERAPY
     Dosage: 10 MG/M2, UNK
     Route: 065
     Dates: start: 20060301
  4. METHOTREXATE [Concomitant]
     Dosage: 7 MG/M2, UNK
     Route: 042
  5. BUSULPHAN [Concomitant]
     Indication: UNRELATED DONOR BONE MARROW TRANSPLANTATION THERAPY
     Dosage: 4 MG/KG/DAY
     Route: 048
  6. CYCLOPHOSPHAMIDE [Concomitant]
     Indication: UNRELATED DONOR BONE MARROW TRANSPLANTATION THERAPY
     Dosage: 60 MG/KG/DAY
     Route: 042
  7. BLOOD TRANSFUSION, AUXILIARY PRODUCTS [Concomitant]
  8. DALTEPARIN SODIUM [Concomitant]
     Dosage: 100 MG/KG/DAY
  9. URSODIOL [Concomitant]
     Dosage: 600 MG PER DAY

REACTIONS (23)
  - ABDOMINAL PAIN UPPER [None]
  - ACUTE GRAFT VERSUS HOST DISEASE IN SKIN [None]
  - ANURIA [None]
  - ASCITES [None]
  - BLOOD CREATININE INCREASED [None]
  - COAGULOPATHY [None]
  - CONTINUOUS HAEMODIAFILTRATION [None]
  - EATING DISORDER [None]
  - EPISTAXIS [None]
  - GALLBLADDER DISORDER [None]
  - HEPATOMEGALY [None]
  - HYPERBILIRUBINAEMIA [None]
  - NAUSEA [None]
  - PLATELET COUNT DECREASED [None]
  - PYREXIA [None]
  - RASH [None]
  - REFRACTORINESS TO PLATELET TRANSFUSION [None]
  - RENAL FAILURE ACUTE [None]
  - RENAL IMPAIRMENT [None]
  - STAPHYLOCOCCAL INFECTION [None]
  - THROMBOCYTOPENIA [None]
  - VENOOCCLUSIVE LIVER DISEASE [None]
  - WEIGHT INCREASED [None]
